FAERS Safety Report 5824588-9 (Version None)
Quarter: 2008Q3

REPORT INFORMATION
  Report Type: 
  Country: None (occurrence: None)
  Receive Date: 20080728
  Receipt Date: 20080202
  Transmission Date: 20090109
  Serious: No
  Sender: FDA-Public Use
  Company Number: US-BAYER-200810563BCC

PATIENT
  Age: 57 Year
  Sex: Male
  Weight: 91 kg

DRUGS (2)
  1. ALEVE [Suspect]
     Indication: DRUG USE FOR UNKNOWN INDICATION
     Dosage: AS USED: 1100 MG  UNIT DOSE: 220 MG
     Dates: start: 20080202
  2. LIPITOR [Concomitant]

REACTIONS (1)
  - NO ADVERSE EVENT [None]
